FAERS Safety Report 20232942 (Version 1)
Quarter: 2021Q4

REPORT INFORMATION
  Report Type: Spontaneous
  Country: US (occurrence: None)
  Receive Date: 20211224
  Receipt Date: 20211224
  Transmission Date: 20220303
  Serious: No
  Sender: FDA-Public Use
  Company Number: None

PATIENT
  Age: 41 Year
  Sex: Male
  Weight: 83.7 kg

DRUGS (4)
  1. MERCAPTOPURINE [Suspect]
     Active Substance: MERCAPTOPURINE
     Dates: end: 20211122
  2. METHOTREXATE [Suspect]
     Active Substance: METHOTREXATE
     Dates: end: 20211122
  3. PREDNISONE [Suspect]
     Active Substance: PREDNISONE
     Dates: end: 20211116
  4. VINCRISTINE SULFATE [Suspect]
     Active Substance: VINCRISTINE SULFATE
     Dates: end: 20211112

REACTIONS (2)
  - Arthralgia [None]
  - Osteonecrosis [None]

NARRATIVE: CASE EVENT DATE: 20211122
